FAERS Safety Report 14239797 (Version 7)
Quarter: 2018Q3

REPORT INFORMATION
  Report Type: Spontaneous
  Country: GB (occurrence: GB)
  Receive Date: 20171130
  Receipt Date: 20180810
  Transmission Date: 20181010
  Serious: Yes (Life-Threatening, Hospitalization, Other)
  Sender: FDA-Public Use
  Company Number: GB-TEVA-2017-GB-826213

PATIENT
  Age: 16 Year
  Sex: Male

DRUGS (12)
  1. RANITIDINE. [Suspect]
     Active Substance: RANITIDINE
     Indication: PRODUCT USED FOR UNKNOWN INDICATION
     Route: 065
  2. VANCOMYCIN [Concomitant]
     Active Substance: VANCOMYCIN
  3. GENTAMICIN. [Concomitant]
     Active Substance: GENTAMICIN
  4. FUROSEMIDE. [Concomitant]
     Active Substance: FUROSEMIDE
  5. SPIRONOLACTONE. [Concomitant]
     Active Substance: SPIRONOLACTONE
  6. TEMAZEPAM. [Concomitant]
     Active Substance: TEMAZEPAM
  7. RIFAMPICIN [Concomitant]
     Active Substance: RIFAMPIN
  8. MEROPENEM. [Concomitant]
     Active Substance: MEROPENEM
  9. ENOXAPARIN [Concomitant]
     Active Substance: ENOXAPARIN
  10. CEFTRIAXONE. [Concomitant]
     Active Substance: CEFTRIAXONE
  11. PARACETAMOL [Concomitant]
     Active Substance: ACETAMINOPHEN
  12. IBUPROFEN. [Concomitant]
     Active Substance: IBUPROFEN

REACTIONS (1)
  - Drug reaction with eosinophilia and systemic symptoms [Recovered/Resolved]
